FAERS Safety Report 7582893-2 (Version None)
Quarter: 2011Q2

REPORT INFORMATION
  Report Type: 
  Country: None (occurrence: None)
  Receive Date: 20110630
  Receipt Date: 20110616
  Transmission Date: 20111010
  Serious: No
  Sender: FDA-Public Use
  Company Number: US-B.I. PHARMACEUTICALS,INC./RIDGEFIELD-2011-BP-15606BP

PATIENT
  Sex: Male

DRUGS (14)
  1. EPLERENONE [Concomitant]
     Indication: ISCHAEMIC CARDIOMYOPATHY
     Dosage: 25 MG
     Route: 048
  2. LASIX [Concomitant]
     Indication: FLUID RETENTION
     Dosage: 40 MG
     Route: 048
  3. KLONOPIN [Concomitant]
     Indication: ANXIETY
     Route: 048
  4. ASPIRIN [Concomitant]
     Indication: PROPHYLAXIS
     Dosage: 81 MG
     Route: 048
  5. NITROGLYCERIN [Concomitant]
     Indication: ANGINA PECTORIS
  6. PROTONIX [Concomitant]
     Indication: ABDOMINAL DISCOMFORT
     Dosage: 40 MG
     Route: 048
  7. LIPITOR [Concomitant]
     Indication: ISCHAEMIC CARDIOMYOPATHY
     Dosage: 10 MG
     Route: 048
  8. MG [Concomitant]
     Indication: PROPHYLAXIS
     Dosage: 64 MG
     Route: 048
  9. PLAVIX [Concomitant]
     Indication: ISCHAEMIC CARDIOMYOPATHY
     Dosage: 75 MG
     Route: 048
  10. LOSARTAN POTASSIUM [Concomitant]
     Indication: ISCHAEMIC CARDIOMYOPATHY
     Dosage: 50 MG
     Route: 048
  11. TOPROL-XL [Concomitant]
     Indication: ISCHAEMIC CARDIOMYOPATHY
     Dosage: 25 MG
     Route: 048
  12. POTASSIUM CHLORIDE [Concomitant]
     Indication: PROPHYLAXIS
     Dosage: 60 MG
     Route: 048
  13. PRADAXA [Suspect]
     Indication: ATRIAL FIBRILLATION
     Dosage: 300 MG
     Route: 048
     Dates: start: 20110519
  14. NEURONTIN [Concomitant]
     Indication: HEADACHE
     Dosage: 1800 MG
     Route: 048

REACTIONS (1)
  - MEDICATION RESIDUE [None]
